FAERS Safety Report 5479849-2 (Version None)
Quarter: 2007Q4

REPORT INFORMATION
  Report Type: 
  Country: None (occurrence: None)
  Receive Date: 20071008
  Receipt Date: 20071002
  Transmission Date: 20080405
  Serious: Yes (Other)
  Sender: FDA-Public Use
  Company Number: HQWYE793524AUG07

PATIENT
  Sex: Female
  Weight: 65.83 kg

DRUGS (5)
  1. EFFEXOR XR [Suspect]
     Indication: DEPRESSION
     Dosage: SLOWLY TAPERED UP TO 187.5 MG DAILY
     Route: 048
     Dates: start: 20050601, end: 20050101
  2. EFFEXOR XR [Suspect]
     Route: 048
     Dates: start: 20050101, end: 20070701
  3. EFFEXOR XR [Suspect]
     Route: 048
     Dates: start: 20070801
  4. PROVIGIL [Concomitant]
     Dosage: UNKNOWN
  5. LAMICTAL [Suspect]
     Indication: DEPRESSION
     Dosage: UNKNOWN
     Dates: start: 20070701

REACTIONS (7)
  - ALOPECIA [None]
  - CONFUSIONAL STATE [None]
  - CRYING [None]
  - DRUG WITHDRAWAL SYNDROME [None]
  - FEELING ABNORMAL [None]
  - PANIC ATTACK [None]
  - WEIGHT INCREASED [None]
